FAERS Safety Report 14927708 (Version 1)
Quarter: 2018Q2

REPORT INFORMATION
  Report Type: Spontaneous
  Country: NL (occurrence: NL)
  Receive Date: 20180523
  Receipt Date: 20180523
  Transmission Date: 20180711
  Serious: Yes (Hospitalization, Other)
  Sender: FDA-Public Use
  Company Number: NL-APOTEX-2018AP014029

PATIENT
  Age: 52 Year
  Sex: Male

DRUGS (2)
  1. BENZENE [Suspect]
     Active Substance: BENZENE
     Indication: PRODUCT USED FOR UNKNOWN INDICATION
     Dosage: INJECTION IN THE LEFT HEMITHORAX
     Route: 050
  2. ETOS PARACETAMOL 500 MG, TABLETTEN [Suspect]
     Active Substance: ACETAMINOPHEN
     Indication: PRODUCT USED FOR UNKNOWN INDICATION
     Dosage: 50 DF (TABLETS)
     Route: 048

REACTIONS (2)
  - Suicide attempt [Unknown]
  - Toxicity to various agents [Unknown]
